FAERS Safety Report 25178672 (Version 1)
Quarter: 2025Q2

REPORT INFORMATION
  Report Type: Spontaneous
  Country: US (occurrence: US)
  Receive Date: 20250409
  Receipt Date: 20250409
  Transmission Date: 20250717
  Serious: No
  Sender: ALMIRALL
  Company Number: US-ALMIRALL, LLC-2024AQU000066

PATIENT

DRUGS (1)
  1. DAPSONE [Suspect]
     Active Substance: DAPSONE
     Indication: Product used for unknown indication
     Route: 065

REACTIONS (3)
  - Anger [Unknown]
  - Product packaging quantity issue [Unknown]
  - Product physical issue [Unknown]
